FAERS Safety Report 4367290-5 (Version None)
Quarter: 2004Q2

REPORT INFORMATION
  Report Type: 
  Country: None (occurrence: None)
  Receive Date: 20040524
  Receipt Date: 20040326
  Transmission Date: 20050107
  Serious: Yes (Other)
  Sender: FDA-Public Use
  Company Number: CH 2004 0004

PATIENT
  Age: 32 Year
  Sex: Male

DRUGS (1)
  1. MEGLUMINE GADOTERATE [Suspect]
     Indication: NUCLEAR MAGNETIC RESONANCE IMAGING BRAIN
     Dosage: 15 ML PER DAY INTRA-VEINOUS
     Route: 042
     Dates: start: 20040326

REACTIONS (2)
  - INJECTION SITE NECROSIS [None]
  - MEDICATION ERROR [None]
